FAERS Safety Report 14420095 (Version 1)
Quarter: 2018Q1

REPORT INFORMATION
  Report Type: Spontaneous
  Country: US (occurrence: US)
  Receive Date: 20180122
  Receipt Date: 20180122
  Transmission Date: 20180509
  Serious: No
  Sender: FDA-Public Use
  Company Number: US-ROCHE-1865724

PATIENT
  Age: 47 Year
  Sex: Female

DRUGS (1)
  1. RITUXAN [Suspect]
     Active Substance: RITUXIMAB
     Indication: RHEUMATOID ARTHRITIS
     Dosage: VIALS 500 MG/50 ML?ONGOING: UNKNOWN
     Route: 042
     Dates: start: 20161206

REACTIONS (6)
  - Mucous membrane disorder [Unknown]
  - Tongue erythema [Unknown]
  - Sneezing [Unknown]
  - Cough [Unknown]
  - Pharyngeal oedema [Unknown]
  - Throat irritation [Unknown]

NARRATIVE: CASE EVENT DATE: 20161206
